FAERS Safety Report 4909391-6 (Version None)
Quarter: 2006Q1

REPORT INFORMATION
  Report Type: 
  Country: None (occurrence: None)
  Receive Date: 20060209
  Receipt Date: 20060209
  Transmission Date: 20060701
  Serious: No
  Sender: FDA-Public Use
  Company Number: None

PATIENT
  Sex: Male
  Weight: 90.7194 kg

DRUGS (1)
  1. ZICAM STD NASAL GEL MATRIXX [Suspect]
     Indication: NASOPHARYNGITIS
     Dosage: PER INSTRUCTIONS 2-3 TIMES NASAL
     Route: 045
     Dates: start: 20050815, end: 20050818

REACTIONS (2)
  - ANOSMIA [None]
  - PAROSMIA [None]
